FAERS Safety Report 24239252 (Version 3)
Quarter: 2024Q4

REPORT INFORMATION
  Report Type: Other
  Country: US (occurrence: US)
  Receive Date: 20240822
  Receipt Date: 20241111
  Transmission Date: 20250114
  Serious: No
  Sender: TRAVERE THERAPEUTICS
  Company Number: US-TRAVERE-2024TVT00808

PATIENT
  Sex: Female

DRUGS (1)
  1. FILSPARI [Suspect]
     Active Substance: SPARSENTAN
     Indication: IgA nephropathy
     Route: 048
     Dates: start: 20240716, end: 202409

REACTIONS (7)
  - Chest pain [Unknown]
  - Pain [Unknown]
  - Fatigue [Unknown]
  - Pain in extremity [Unknown]
  - Oropharyngeal pain [Unknown]
  - Myalgia [Unknown]
  - Dizziness [Unknown]
